FAERS Safety Report 10032426 (Version 1)
Quarter: 2014Q1

REPORT INFORMATION
  Report Type: Spontaneous
  Country: GB (occurrence: None)
  Receive Date: 20140320
  Receipt Date: 20140320
  Transmission Date: 20141002
  Serious: Yes (Hospitalization)
  Sender: FDA-Public Use
  Company Number: GB-DEXPHARM-20140126

PATIENT
  Age: 69 Year
  Sex: Female

DRUGS (6)
  1. INDAPAMIDE [Suspect]
     Indication: HYPERTENSION
     Route: 048
     Dates: end: 20140209
  2. ATENOLOL [Concomitant]
  3. ENALAPRIL [Concomitant]
  4. LACTULOSE [Concomitant]
  5. SENNA [Concomitant]
  6. OMEPRAZOLE [Suspect]
     Dosage: PO.
     Dates: end: 20140209

REACTIONS (4)
  - Circulatory collapse [None]
  - Liver function test abnormal [None]
  - Hyponatraemia [None]
  - Unresponsive to stimuli [None]
